FAERS Safety Report 24245735 (Version 1)
Quarter: 2024Q3

REPORT INFORMATION
  Report Type: Spontaneous
  Country: CA (occurrence: CA)
  Receive Date: 20240824
  Receipt Date: 20240824
  Transmission Date: 20241016
  Serious: Yes (Other)
  Sender: GENMAB
  Company Number: CA-ABBVIE-5887482

PATIENT
  Age: 56 Year
  Sex: Male

DRUGS (1)
  1. EPKINLY [Suspect]
     Active Substance: EPCORITAMAB-BYSP
     Indication: Diffuse large B-cell lymphoma
     Dosage: 0.16 MILLIGRAM  FREQUENCY TEXT: CYCLICAL
     Route: 058

REACTIONS (1)
  - Palliative care [Unknown]
